FAERS Safety Report 10482284 (Version 1)
Quarter: 2014Q3

REPORT INFORMATION
  Report Type: Spontaneous
  Country: US (occurrence: US)
  Receive Date: 20140929
  Receipt Date: 20140929
  Transmission Date: 20150326
  Serious: Yes (Death, Hospitalization)
  Sender: FDA-Public Use
  Company Number: US-TEVA-511162USA

PATIENT
  Age: 21 Year
  Sex: Female

DRUGS (4)
  1. PHENOBARBITAL. [Concomitant]
     Active Substance: PHENOBARBITAL
     Indication: CONVULSION
     Route: 065
  2. LAMOTRIGINE. [Suspect]
     Active Substance: LAMOTRIGINE
     Indication: CONVULSION
     Route: 065
  3. LEVETIRACETAM. [Concomitant]
     Active Substance: LEVETIRACETAM
     Indication: CONVULSION
     Route: 065
  4. PHENYTOIN. [Suspect]
     Active Substance: PHENYTOIN
     Indication: CONVULSION
     Route: 065

REACTIONS (7)
  - Infection [Fatal]
  - Enterocolitis [Fatal]
  - Multi-organ failure [Fatal]
  - Histiocytosis haematophagic [Fatal]
  - Malnutrition [Fatal]
  - Cachexia [Fatal]
  - Drug reaction with eosinophilia and systemic symptoms [Fatal]
